FAERS Safety Report 13636292 (Version 2)
Quarter: 2017Q3

REPORT INFORMATION
  Report Type: Spontaneous
  Country: GB (occurrence: GB)
  Receive Date: 20170609
  Receipt Date: 20170809
  Transmission Date: 20171127
  Serious: Yes (Life-Threatening)
  Sender: FDA-Public Use
  Company Number: GB-TEVA-776645ACC

PATIENT
  Age: 48 Year
  Sex: Male
  Weight: 100 kg

DRUGS (4)
  1. SPIRONOLACTONE. [Suspect]
     Active Substance: SPIRONOLACTONE
     Dosage: 200 MILLIGRAM DAILY; 200MG DAILY WITH EXTRA 100MG EVERY OTHER DAY.
     Route: 048
     Dates: start: 20020711
  2. SPIRONOLACTONE. [Suspect]
     Active Substance: SPIRONOLACTONE
     Indication: HYPERTENSION
     Route: 048
     Dates: start: 2002, end: 2017
  3. CITALOPRAM [Concomitant]
     Active Substance: CITALOPRAM HYDROBROMIDE
  4. EPLERENONE. [Concomitant]
     Active Substance: EPLERENONE
     Dosage: AT PRESENT I AM ON 100MG.
     Dates: start: 2014

REACTIONS (9)
  - Mental disorder [Not Recovered/Not Resolved]
  - Loss of libido [Unknown]
  - Gynaecomastia [Not Recovered/Not Resolved]
  - Gender dysphoria [Not Recovered/Not Resolved]
  - Irritability [Unknown]
  - Psychiatric symptom [Not Recovered/Not Resolved]
  - Libido decreased [Not Recovered/Not Resolved]
  - Erectile dysfunction [Unknown]
  - Insomnia [Unknown]

NARRATIVE: CASE EVENT DATE: 20090101
